FAERS Safety Report 6391259-2 (Version None)
Quarter: 2009Q4

REPORT INFORMATION
  Report Type: 
  Country: None (occurrence: None)
  Receive Date: 20091006
  Receipt Date: 20091006
  Transmission Date: 20100525
  Serious: No
  Sender: FDA-Public Use
  Company Number: None

PATIENT
  Age: 38 Year
  Sex: Male
  Weight: 99.7913 kg

DRUGS (1)
  1. PREDNISONE [Suspect]
     Indication: BACK PAIN
     Dosage: 40MG DAILY PO
     Route: 048
     Dates: start: 20090922, end: 20090930

REACTIONS (9)
  - ARTHRALGIA [None]
  - ARTHROPATHY [None]
  - ASTHENIA [None]
  - BLOOD CREATINE PHOSPHOKINASE INCREASED [None]
  - BLOOD TEST ABNORMAL [None]
  - DRUG INEFFECTIVE [None]
  - GAIT DISTURBANCE [None]
  - INJURY [None]
  - MUSCLE INJURY [None]
